FAERS Safety Report 9333016 (Version 1)
Quarter: 2013Q2

REPORT INFORMATION
  Report Type: Spontaneous
  Country: US (occurrence: US)
  Receive Date: 20130606
  Receipt Date: 20130606
  Transmission Date: 20140414
  Serious: Yes (Other)
  Sender: FDA-Public Use
  Company Number: US-PFIZER INC-2013167259

PATIENT
  Sex: 0

DRUGS (3)
  1. ZYVOX [Suspect]
     Dosage: UNK
  2. XANAX [Concomitant]
     Dosage: UNK
  3. OXYCODONE [Concomitant]
     Dosage: UNK

REACTIONS (1)
  - Convulsion [Unknown]
